FAERS Safety Report 8165702-2 (Version None)
Quarter: 2012Q1

REPORT INFORMATION
  Report Type: 
  Country: None (occurrence: None)
  Receive Date: 20120223
  Receipt Date: 20120223
  Transmission Date: 20120608
  Serious: No
  Sender: FDA-Public Use
  Company Number: None

PATIENT
  Age: 60 Year
  Sex: Female
  Weight: 68.0396 kg

DRUGS (2)
  1. ABILIFY [Suspect]
     Indication: ANXIETY
     Dosage: 2 MG ONCE DAY MOUTH NOW 1 MG ONCE DAY MOUTH
     Route: 048
  2. ABILIFY [Suspect]
     Indication: DEPRESSION
     Dosage: 2 MG ONCE DAY MOUTH NOW 1 MG ONCE DAY MOUTH
     Route: 048

REACTIONS (4)
  - INCREASED APPETITE [None]
  - DYSPHAGIA [None]
  - ANXIETY [None]
  - INSOMNIA [None]
